FAERS Safety Report 8633860 (Version 4)
Quarter: 2013Q4

REPORT INFORMATION
  Report Type: Spontaneous
  Country: US (occurrence: None)
  Receive Date: 20120612
  Receipt Date: 20131022
  Transmission Date: 20140711
  Serious: Yes (Hospitalization, Other)
  Sender: FDA-Public Use
  Company Number: 2012-002048

PATIENT
  Age: 65 Year
  Sex: Female
  Weight: 65.9 kg

DRUGS (14)
  1. ACTONEL [Suspect]
     Indication: OSTEOPENIA
     Dosage: 35 MG, ONCE WEEKLY, ORAL
     Route: 048
     Dates: start: 20031207, end: 20041116
  2. ACTONEL [Suspect]
     Dosage: 35 MG, ONCE WEEKLY, ORAL
     Route: 048
     Dates: start: 20031207, end: 20041116
  3. ACTONEL (RISEDRONATE SODIUM) TABLET, 5MG [Suspect]
     Indication: OSTEOPENIA
     Dosage: ORAL
     Route: 048
     Dates: start: 200202, end: 200312
  4. ACTONEL (RISEDRONATE SODIUM) TABLET, 5MG [Suspect]
     Dosage: ORAL
     Route: 048
     Dates: start: 200202, end: 200312
  5. FOSAMAX (ALENDRONATE SODIUM) [Suspect]
     Indication: OSTEOPENIA
     Route: 048
     Dates: start: 20041116, end: 200603
  6. FOSAMAX (ALENDRONATE SODIUM) [Suspect]
     Route: 048
     Dates: start: 20041116, end: 200603
  7. BONIVA (IBANDRONATE SODIUM) [Suspect]
     Indication: OSTEOPENIA
     Route: 048
     Dates: start: 200601, end: 200911
  8. BONIVA (IBANDRONATE SODIUM) [Suspect]
     Route: 048
     Dates: start: 200601, end: 200911
  9. ESTRACE VAGINAL (ESTRADIOL) [Concomitant]
  10. ZYRTEC-D (CETIRIZINE HYDROCHLORIDE PSEUDOEPHEDRINE HYDROCHLORIDE) [Concomitant]
  11. EFFEXOR XR (VENLAFAXINE HYDROCHLORIDE) [Concomitant]
  12. SYNTHROID (LEVOTHYROXINE SODIUM) [Concomitant]
  13. CALCIUM (CALCIUM) [Concomitant]
  14. VITAMIN D /00318501/ (COLECALCIFEROL) [Concomitant]

REACTIONS (21)
  - Pathological fracture [None]
  - Femur fracture [None]
  - Pain in extremity [None]
  - Gait disturbance [None]
  - Stress fracture [None]
  - Scar [None]
  - Pain [None]
  - Low turnover osteopathy [None]
  - Wheelchair user [None]
  - Walking aid user [None]
  - Fall [None]
  - Injury [None]
  - Vitamin D decreased [None]
  - Low turnover osteopathy [None]
  - Myalgia [None]
  - Muscular weakness [None]
  - Asthenia [None]
  - Fracture displacement [None]
  - Muscular weakness [None]
  - Intervertebral disc degeneration [None]
  - Axonal neuropathy [None]
